FAERS Safety Report 7511663-6 (Version None)
Quarter: 2011Q2

REPORT INFORMATION
  Report Type: 
  Country: None (occurrence: None)
  Receive Date: 20110531
  Receipt Date: 20110523
  Transmission Date: 20111010
  Serious: Yes (Other)
  Sender: FDA-Public Use
  Company Number: AT-B.I. PHARMACEUTICALS,INC./RIDGEFIELD-2011-AP-00287AP

PATIENT
  Age: 64 Year
  Sex: Male
  Weight: 80 kg

DRUGS (1)
  1. SPIRIVA RESPIMAT [Suspect]
     Indication: CHRONIC OBSTRUCTIVE PULMONARY DISEASE
     Dosage: 2-0-0

REACTIONS (1)
  - DRUG INEFFECTIVE [None]
